FAERS Safety Report 16618607 (Version 7)
Quarter: 2020Q1

REPORT INFORMATION
  Report Type: Report from Study
  Country: FR (occurrence: FR)
  Receive Date: 20190723
  Receipt Date: 20200128
  Transmission Date: 20200409
  Serious: Yes (Death, Hospitalization)
  Sender: FDA-Public Use
  Company Number: FR-PFIZER INC-2019303560

PATIENT
  Age: 69 Year
  Sex: Female
  Weight: 50 kg

DRUGS (9)
  1. DOLIPRANE [Concomitant]
     Active Substance: ACETAMINOPHEN
     Indication: PROPHYLAXIS
     Dosage: 5 G, DAILY
     Route: 048
     Dates: start: 20181029
  2. PANTOPRAZOLE [Concomitant]
     Active Substance: PANTOPRAZOLE
     Indication: PROPHYLAXIS
     Dosage: 40 MG, DAILY
     Route: 048
     Dates: start: 20190109
  3. NIVOLUMAB [Concomitant]
     Active Substance: NIVOLUMAB
     Indication: NEOPLASM MALIGNANT
     Dosage: 240 MG, DAILY
     Route: 048
     Dates: start: 20181130
  4. BISOPROLOL [Concomitant]
     Active Substance: BISOPROLOL
     Indication: PROPHYLAXIS
     Dosage: 1.5 MG, DAILY
     Route: 048
     Dates: start: 201404
  5. FRAGMINE [Concomitant]
     Active Substance: DALTEPARIN SODIUM
     Indication: PULMONARY EMBOLISM
     Dosage: 100 IU/KG, DAILY
     Route: 058
     Dates: start: 20190612
  6. DALTEPARIN SODIUM [Suspect]
     Active Substance: DALTEPARIN SODIUM
     Indication: PULMONARY EMBOLISM
     Dosage: 7500 IU (100 IU/KG), DAILY
     Route: 058
     Dates: start: 20190513, end: 20190527
  7. PREGABALINE [Concomitant]
     Active Substance: PREGABALIN
     Dosage: 300 MG, DAILY
     Route: 048
     Dates: start: 20190509
  8. LYRICA [Concomitant]
     Active Substance: PREGABALIN
     Indication: NEOPLASM MALIGNANT
     Dosage: 150 MG, 2X/DAY
     Route: 048
     Dates: start: 20181203
  9. MOVICOL [Concomitant]
     Active Substance: POLYETHYLENE GLYCOL 3350\POTASSIUM CHLORIDE\SODIUM BICARBONATE\SODIUM CHLORIDE
     Indication: PROPHYLAXIS
     Dosage: 2 DF, DAILY
     Route: 048
     Dates: start: 20190522

REACTIONS (2)
  - Haematoma [Fatal]
  - Disease progression [Fatal]

NARRATIVE: CASE EVENT DATE: 20190527
